FAERS Safety Report 6846044-1 (Version None)
Quarter: 2010Q3

REPORT INFORMATION
  Report Type: 
  Country: None (occurrence: None)
  Receive Date: 20100712
  Receipt Date: 20100629
  Transmission Date: 20110219
  Serious: Yes (Hospitalization, Other)
  Sender: FDA-Public Use
  Company Number: WAES 1006USA04584

PATIENT
  Age: 46 Year
  Sex: Male

DRUGS (13)
  1. ISENTRESS [Suspect]
     Indication: HIV INFECTION
     Dosage: 400 MG/ BID
     Dates: start: 20100202, end: 20100601
  2. AMBIEN [Concomitant]
     Indication: PAIN
  3. FLEXERIL [Concomitant]
  4. KALETRA [Concomitant]
  5. KLOR-CON [Concomitant]
  6. LAMICTAL [Concomitant]
  7. LEXAPRO [Concomitant]
  8. REMERON [Concomitant]
  9. RISPERDAL [Concomitant]
  10. VISTARIL [Concomitant]
  11. GABAPENTIN [Concomitant]
  12. HYDROCHLOROTHIAZIDE (+) LISINOPR [Concomitant]
  13. PRAVASTATIN SODIUM [Concomitant]

REACTIONS (18)
  - ABASIA [None]
  - ARTHRALGIA [None]
  - BACK PAIN [None]
  - CHEST PAIN [None]
  - CONVERSION DISORDER [None]
  - DYSPNOEA [None]
  - FALL [None]
  - FOLATE DEFICIENCY [None]
  - HYPERHIDROSIS [None]
  - MUSCULOSKELETAL PAIN [None]
  - NAUSEA [None]
  - NEUROPATHY PERIPHERAL [None]
  - OSTEOARTHRITIS [None]
  - PAIN [None]
  - PAIN IN EXTREMITY [None]
  - SPINAL CORD COMPRESSION [None]
  - SPINAL DISORDER [None]
  - VITAMIN B12 DEFICIENCY [None]
